FAERS Safety Report 8764900 (Version 1)
Quarter: 2012Q4

REPORT INFORMATION
  Report Type: 
  Country: DE (occurrence: DE)
  Receive Date: 20120901
  Receipt Date: 20120901
  Transmission Date: 20130627
  Serious: Yes (Death, Life-Threatening)
  Sender: FDA-Public Use
  Company Number: DE-009507513-1208DEU010735

PATIENT

DRUGS (2)
  1. EMEND [Suspect]
     Indication: PROPHYLAXIS OF NAUSEA AND VOMITING
     Dosage: UNK
     Route: 048
  2. PACLITAXEL [Concomitant]
     Dosage: UNK, qw

REACTIONS (6)
  - Infection [Fatal]
  - Bone marrow toxicity [Fatal]
  - Bone marrow failure [Unknown]
  - Inflammation [Unknown]
  - Pain [Unknown]
  - Immunosuppression [Fatal]
